FAERS Safety Report 9820083 (Version 1)
Quarter: 2013Q4

REPORT INFORMATION
  Report Type: Spontaneous
  Country: GB (occurrence: None)
  Receive Date: 20131016
  Receipt Date: 20131016
  Transmission Date: 20140711
  Serious: Yes (Life-Threatening, Hospitalization)
  Sender: FDA-Public Use
  Company Number: E2B_00001005

PATIENT
  Age: 51 Year
  Sex: Female

DRUGS (5)
  1. QUETIAPINE [Suspect]
     Indication: PRODUCT USED FOR UNKNOWN INDICATION
     Dosage: 7200 MG (300 MG, 24 IN 1 D)
     Dates: start: 20130328, end: 20130328
  2. ZAPONEX [Suspect]
     Indication: PRODUCT USED FOR UNKNOWN INDICATION
     Route: 048
     Dates: start: 20090803, end: 200908
  3. PARACETAMOL [Suspect]
     Indication: PRODUCT USED FOR UNKNOWN INDICATION
     Dosage: 8000 MG (500 MG, 16 IN 1 D)
     Dates: start: 20130328, end: 20130328
  4. PROPANOL [Suspect]
     Indication: PRODUCT USED FOR UNKNOWN INDICATION
     Dosage: 220 MG (10 MG, 22 IN 1D)
     Dates: start: 20130328, end: 20130328
  5. DOXYCYCLINE [Suspect]
     Indication: PRODUCT USED FOR UNKNOWN INDICATION
     Dosage: 600 MG (100 MG, 6 IN 1 D)
     Dates: start: 20130328, end: 20130328

REACTIONS (6)
  - Overdose [None]
  - Hypotension [None]
  - Gamma-glutamyltransferase increased [None]
  - Protein total decreased [None]
  - Blood albumin decreased [None]
  - Blood alkaline phosphatase increased [None]
